FAERS Safety Report 23937560 (Version 1)
Quarter: 2024Q2

REPORT INFORMATION
  Report Type: Spontaneous
  Country: JP (occurrence: JP)
  Receive Date: 20240604
  Receipt Date: 20240604
  Transmission Date: 20240716
  Serious: Yes (Life-Threatening, Hospitalization, Other)
  Sender: FDA-Public Use
  Company Number: None

PATIENT
  Age: 6 Decade
  Sex: Female

DRUGS (14)
  1. TELMISARTAN [Suspect]
     Active Substance: TELMISARTAN
     Indication: Product used for unknown indication
     Dosage: 40 MG, ONCE PER DAY
     Route: 065
  2. TELMISARTAN [Suspect]
     Active Substance: TELMISARTAN
     Dosage: 1520 MG, 1 TOTAL , INGESTED
     Route: 048
  3. OLMESARTAN MEDOXOMIL [Suspect]
     Active Substance: OLMESARTAN MEDOXOMIL
     Indication: Product used for unknown indication
     Dosage: 550 MG, 1 TOTAL, INGESTED
     Route: 048
  4. OLMESARTAN MEDOXOMIL [Suspect]
     Active Substance: OLMESARTAN MEDOXOMIL
     Dosage: 5 MG, ONCE PER DAY
     Route: 065
  5. AMLODIPINE BESYLATE [Suspect]
     Active Substance: AMLODIPINE BESYLATE
     Indication: Product used for unknown indication
     Dosage: 190 MG,1 TOTAL
     Route: 048
  6. AMLODIPINE BESYLATE [Suspect]
     Active Substance: AMLODIPINE BESYLATE
     Dosage: 5 MG, ONCE PER DAY
     Route: 065
  7. NIFEDIPINE [Suspect]
     Active Substance: NIFEDIPINE
     Indication: Product used for unknown indication
     Dosage: 30 MG, ONCE PER DAY
     Route: 065
  8. NIFEDIPINE [Suspect]
     Active Substance: NIFEDIPINE
     Dosage: 2160 MG, 1 TOTAL, INGESTED
     Route: 048
  9. VILDAGLIPTIN [Suspect]
     Active Substance: VILDAGLIPTIN
     Indication: Product used for unknown indication
     Dosage: 7000 MG, 1 TOTAL, INGESTED
     Route: 048
  10. VILDAGLIPTIN [Suspect]
     Active Substance: VILDAGLIPTIN
     Dosage: 100 MG, ONCE PER DAY
     Route: 065
  11. ESAXERENONE [Suspect]
     Active Substance: ESAXERENONE
     Indication: Product used for unknown indication
     Dosage: 160 MG, 1 TOTAL, INGESTED
     Route: 048
  12. ESAXERENONE [Suspect]
     Active Substance: ESAXERENONE
     Dosage: 2.5 MG, ONCE PER DAY
     Route: 065
  13. AZELNIDIPINE [Suspect]
     Active Substance: AZELNIDIPINE
     Indication: Product used for unknown indication
     Dosage: 8 MG, ONCE PER DAY
     Route: 065
  14. AZELNIDIPINE [Suspect]
     Active Substance: AZELNIDIPINE
     Dosage: 440 MG, 1 TOTAL, INGESTED
     Route: 048

REACTIONS (10)
  - Compartment syndrome [Recovering/Resolving]
  - Coma [Recovered/Resolved]
  - Angioedema [Recovering/Resolving]
  - Shock [Recovered/Resolved]
  - Acute kidney injury [Recovering/Resolving]
  - Necrosis [Recovering/Resolving]
  - Vomiting [Recovering/Resolving]
  - Hypotension [Recovering/Resolving]
  - Intentional overdose [Recovering/Resolving]
  - Nausea [Recovering/Resolving]
